FAERS Safety Report 4561216-7 (Version None)
Quarter: 2005Q1

REPORT INFORMATION
  Report Type: 
  Country: None (occurrence: None)
  Receive Date: 20050124
  Receipt Date: 20050110
  Transmission Date: 20050727
  Serious: Yes (Hospitalization)
  Sender: FDA-Public Use
  Company Number: 2005015400

PATIENT
  Age: 81 Year
  Sex: Male

DRUGS (4)
  1. SOLU-MEDROL [Suspect]
     Dosage: 80 MG (DAILY) SUBCUTANEOUS
     Route: 058
     Dates: start: 20041104, end: 20041108
  2. HEPARIN SODIUM [Suspect]
     Dosage: INTRAVENOUS
     Route: 042
     Dates: start: 20041105, end: 20041106
  3. ACETYLSALICYLIC ACID SRT [Suspect]
     Dosage: 75 MG DAILY ORAL
     Route: 048
     Dates: end: 20041107
  4. HEPARIN-FRACTION, SODIUM SALT(HEPARIN-FRACTION, SODIUM SALT) [Suspect]
     Indication: ILL-DEFINED DISORDER
     Dosage: 1 DOSE FORM DAILY SUBCUTANEOUS
     Route: 058
     Dates: start: 20041104, end: 20041105

REACTIONS (5)
  - ACTIVATED PARTIAL THROMBOPLASTIN TIME PROLONGED [None]
  - DRUG INTERACTION [None]
  - HAEMATOMA [None]
  - HAEMORRHAGE [None]
  - RENAL FAILURE [None]
